FAERS Safety Report 4970908-7 (Version None)
Quarter: 2006Q2

REPORT INFORMATION
  Report Type: 
  Country: None (occurrence: None)
  Receive Date: 20060411
  Receipt Date: 20060411
  Transmission Date: 20061013
  Serious: Yes (Other)
  Sender: FDA-Public Use
  Company Number: None

PATIENT
  Age: 38 Year
  Sex: Male
  Weight: 63.5036 kg

DRUGS (1)
  1. GYNOL II   ORTHO [Suspect]
     Indication: CONTRACEPTION
     Dosage: VAG
     Route: 067
     Dates: start: 19890101, end: 20060410

REACTIONS (2)
  - ACCIDENTAL EXPOSURE [None]
  - ESCHERICHIA URINARY TRACT INFECTION [None]
